FAERS Safety Report 14264613 (Version 1)
Quarter: 2017Q4

REPORT INFORMATION
  Report Type: Report from Study
  Country: US (occurrence: US)
  Receive Date: 20171208
  Receipt Date: 20171208
  Transmission Date: 20180321
  Serious: Yes (Other)
  Sender: FDA-Public Use
  Company Number: US-JAZZ-2017-US-013704

PATIENT
  Age: 42 Year
  Sex: Female
  Weight: 55.78 kg

DRUGS (3)
  1. XYREM [Suspect]
     Active Substance: SODIUM OXYBATE
     Indication: NARCOLEPSY
  2. XYREM [Suspect]
     Active Substance: SODIUM OXYBATE
     Indication: CATAPLEXY
     Dosage: 2.25 G, BID
     Route: 048
     Dates: start: 20171015
  3. PROVIGIL [Concomitant]
     Active Substance: MODAFINIL
     Indication: NARCOLEPSY

REACTIONS (7)
  - Cataplexy [Unknown]
  - Pre-existing condition improved [Unknown]
  - Nausea [Recovered/Resolved]
  - Therapeutic response unexpected [Unknown]
  - Mental fatigue [Not Recovered/Not Resolved]
  - Diarrhoea [Recovered/Resolved]
  - Heart rate increased [Recovered/Resolved]

NARRATIVE: CASE EVENT DATE: 201710
